FAERS Safety Report 8711105 (Version 2)
Quarter: 2012Q4

REPORT INFORMATION
  Report Type: 
  Country: US (occurrence: US)
  Receive Date: 20120807
  Receipt Date: 20120906
  Transmission Date: 20130627
  Serious: No
  Sender: FDA-Public Use
  Company Number: US-009507513-1208USA002021

PATIENT

DRUGS (6)
  1. CLARITIN REDITABS 12HR [Suspect]
     Indication: RHINORRHOEA
     Dosage: 5 mg, qd
     Route: 048
     Dates: start: 20120718, end: 20120719
  2. CLARITIN REDITABS 12HR [Suspect]
     Indication: SNEEZING
  3. DILTIAZEM HYDROCHLORIDE [Concomitant]
     Indication: PRODUCT USED FOR UNKNOWN INDICATION
     Dosage: UNK, Unknown
     Route: 048
  4. LISINOPRIL [Concomitant]
     Indication: PRODUCT USED FOR UNKNOWN INDICATION
     Dosage: UNK, Unknown
  5. ATORVASTATIN [Concomitant]
     Indication: PRODUCT USED FOR UNKNOWN INDICATION
     Dosage: UNK, Unknown
  6. CENTRUM (MINERALS (UNSPECIFIED) (+) VITAMINS (UNSPECIFIED)) [Concomitant]
     Indication: PRODUCT USED FOR UNKNOWN INDICATION
     Dosage: UNK, Unknown

REACTIONS (1)
  - Drug ineffective [Unknown]
